FAERS Safety Report 19518202 (Version 2)
Quarter: 2021Q3

REPORT INFORMATION
  Report Type: Spontaneous
  Country: US (occurrence: US)
  Receive Date: 20210712
  Receipt Date: 20210930
  Transmission Date: 20211014
  Serious: Yes (Hospitalization)
  Sender: FDA-Public Use
  Company Number: US-TEVA-2021-US-1930721

PATIENT
  Age: 74 Year
  Sex: Male
  Weight: 125.6 kg

DRUGS (15)
  1. CARTIA XT [Concomitant]
     Active Substance: DILTIAZEM HYDROCHLORIDE
     Indication: ANGINA PECTORIS
     Dosage: 300 MILLIGRAM DAILY;
     Route: 048
     Dates: start: 201702
  2. MULTIVITAMIN [Concomitant]
     Active Substance: VITAMINS
     Indication: ROUTINE HEALTH MAINTENANCE
     Route: 048
     Dates: start: 1990
  3. VALSARTAN W/HYDROCHLOROTHIAZIDE TEVA [Suspect]
     Active Substance: HYDROCHLOROTHIAZIDE\VALSARTAN
     Indication: HYPERTENSION
     Dosage: VALSARTAN  160 MG/ HYDROCHLOROTHIAZIDE 25 MG
     Route: 048
     Dates: start: 20130703, end: 20170520
  4. WARFARIN [Concomitant]
     Active Substance: WARFARIN
     Indication: ANTICOAGULANT THERAPY
     Route: 065
  5. ATORVASTATIN [Concomitant]
     Active Substance: ATORVASTATIN
     Indication: BLOOD CHOLESTEROL INCREASED
     Dosage: 80 MILLIGRAM DAILY;
     Route: 048
     Dates: start: 2011
  6. PRADAXA [Concomitant]
     Active Substance: DABIGATRAN ETEXILATE MESYLATE
     Indication: ANTICOAGULANT THERAPY
     Dosage: 150 MILLIGRAM DAILY;
     Route: 065
     Dates: end: 20170620
  7. VITAMIN C [Concomitant]
     Active Substance: ASCORBIC ACID
     Indication: ROUTINE HEALTH MAINTENANCE
     Route: 048
     Dates: start: 2001
  8. KRIL OIL [Concomitant]
     Indication: ROUTINE HEALTH MAINTENANCE
     Route: 048
     Dates: start: 2010, end: 2018
  9. VALSARTAN. [Suspect]
     Active Substance: VALSARTAN
     Indication: HYPERTENSION
     Route: 048
     Dates: start: 20170619, end: 20170708
  10. VALSARTAN W/HYDROCHLOROTHIAZIDE SANDOZ [Suspect]
     Active Substance: HYDROCHLOROTHIAZIDE\VALSARTAN
     Indication: HYPERTENSION
     Dosage: VALSARTAN  160 MG/ HYDROCHLOROTHIAZIDE 25 MG
     Route: 048
     Dates: start: 20130603, end: 20130703
  11. METFORMIN [Concomitant]
     Active Substance: METFORMIN HYDROCHLORIDE
     Indication: TYPE 2 DIABETES MELLITUS
     Dosage: ONE TAB EVERY MORNING AND ONE TAB EVERY EVENING WITH FOOD
     Route: 048
     Dates: start: 2010
  12. DILTIAZEM. [Concomitant]
     Active Substance: DILTIAZEM
     Indication: DIURETIC THERAPY
     Dosage: 25 MILLIGRAM DAILY;
     Route: 048
     Dates: start: 2011, end: 2016
  13. CO ENGYME Q10 [Concomitant]
     Indication: ROUTINE HEALTH MAINTENANCE
     Route: 048
     Dates: start: 2010, end: 2018
  14. VALSARTAN W/HYDROCHLOROTHIAZIDE ALEMBIC [Suspect]
     Active Substance: HYDROCHLOROTHIAZIDE\VALSARTAN
     Indication: HYPERTENSION
     Dosage: VALSARTAN  160 MG/ HYDROCHLOROTHIAZIDE 25 MG
     Route: 048
     Dates: start: 20170219, end: 20180717
  15. LIPITOR [Concomitant]
     Active Substance: ATORVASTATIN CALCIUM
     Indication: BLOOD CHOLESTEROL INCREASED
     Dosage: 80 MILLIGRAM DAILY;
     Route: 048

REACTIONS (6)
  - Pulmonary mass [Not Recovered/Not Resolved]
  - Pulmonary granuloma [Not Recovered/Not Resolved]
  - Adenocarcinoma of colon [Recovered/Resolved]
  - Haematochezia [Recovered/Resolved]
  - Pulmonary calcification [Not Recovered/Not Resolved]
  - Hepatic lesion [Not Recovered/Not Resolved]

NARRATIVE: CASE EVENT DATE: 201706
